FAERS Safety Report 8479691-4 (Version None)
Quarter: 2012Q2

REPORT INFORMATION
  Report Type: 
  Country: None (occurrence: None)
  Receive Date: 20120629
  Receipt Date: 20120621
  Transmission Date: 20120825
  Serious: Yes (Hospitalization, Other)
  Sender: FDA-Public Use
  Company Number: US-ABBOTT-12P-163-0908870-00

PATIENT
  Sex: Female
  Weight: 54 kg

DRUGS (21)
  1. CALCIUM [Concomitant]
     Indication: PRODUCT USED FOR UNKNOWN INDICATION
     Route: 048
     Dates: start: 20111215, end: 20120105
  2. VITAMIN D [Concomitant]
     Indication: PRODUCT USED FOR UNKNOWN INDICATION
     Dates: start: 20120215, end: 20120215
  3. ALCOHOL [Concomitant]
     Indication: PRODUCT USED FOR UNKNOWN INDICATION
     Dosage: 2 OZ, TYPE OF LIQUOR NOT NOTED
     Route: 048
     Dates: start: 20110920, end: 20110920
  4. PREDNISONE TAB [Concomitant]
     Dates: start: 20111213, end: 20111220
  5. MULTI-VITAMINS [Concomitant]
     Dosage: 2-3 TIMES WEEKLY
     Route: 048
     Dates: start: 20120202, end: 20120501
  6. IRON [Concomitant]
     Dosage: 3-4 TIMES WEEKLY
     Route: 048
     Dates: start: 20120108, end: 20120501
  7. CAFFEINE [Concomitant]
     Indication: PRODUCT USED FOR UNKNOWN INDICATION
     Dosage: SODA, 2 SERVINGS
     Route: 048
     Dates: start: 20110906, end: 20120221
  8. PREDNISONE TAB [Concomitant]
     Dates: start: 20111229, end: 20120531
  9. MORPHINE [Concomitant]
     Indication: CROHN'S DISEASE
     Route: 042
     Dates: start: 20111205, end: 20120107
  10. PREDNISONE TAB [Concomitant]
     Indication: CROHN'S DISEASE
     Dates: start: 20111205, end: 20111212
  11. MULTI-VITAMINS [Concomitant]
     Indication: PRODUCT USED FOR UNKNOWN INDICATION
     Route: 048
     Dates: start: 20110906, end: 20120201
  12. CAFFEINE CITRATE [Concomitant]
     Indication: PRODUCT USED FOR UNKNOWN INDICATION
     Dosage: 3 SERVINGS
     Route: 048
     Dates: start: 20110906, end: 20120221
  13. PREDNISONE TAB [Concomitant]
     Dates: start: 20111221, end: 20111228
  14. MARIJUANA [Concomitant]
     Indication: PRODUCT USED FOR UNKNOWN INDICATION
     Dosage: ATE 1/4, UNKNOWN HOW MUCH MARIJUANA
     Route: 048
     Dates: start: 20120121, end: 20120121
  15. IRON [Concomitant]
     Indication: PRODUCT USED FOR UNKNOWN INDICATION
     Route: 048
     Dates: start: 20111215, end: 20120107
  16. ULTRAM [Concomitant]
     Indication: CROHN'S DISEASE
     Route: 048
     Dates: start: 20120109, end: 20120130
  17. TEA [Concomitant]
     Indication: PRODUCT USED FOR UNKNOWN INDICATION
     Dosage: 3 SERVINGS
     Route: 048
     Dates: start: 20110906, end: 20120221
  18. HUMIRA [Suspect]
     Indication: CROHN'S DISEASE
     Dates: start: 20110906, end: 20111204
  19. HUMIRA [Suspect]
     Dates: start: 20111205, end: 20120430
  20. INFLUENZA VACCINE [Concomitant]
     Indication: INFLUENZA
     Route: 050
     Dates: start: 20111101, end: 20111101
  21. MARIJUANA [Concomitant]
     Dosage: ATE 1 BROWNIE
     Route: 048
     Dates: start: 20120315, end: 20120315

REACTIONS (11)
  - INFLUENZA LIKE ILLNESS [None]
  - CROHN'S DISEASE [None]
  - DYSPEPSIA [None]
  - NAUSEA [None]
  - DEHYDRATION [None]
  - PYREXIA [None]
  - ANAEMIA [None]
  - BACTERIAL INFECTION [None]
  - DYSPNOEA [None]
  - HYPERSENSITIVITY [None]
  - ALLERGIC RESPIRATORY SYMPTOM [None]
